FAERS Safety Report 11429722 (Version 5)
Quarter: 2016Q1

REPORT INFORMATION
  Report Type: Spontaneous
  Country: US (occurrence: US)
  Receive Date: 20150828
  Receipt Date: 20160330
  Transmission Date: 20160525
  Serious: Yes (Hospitalization)
  Sender: FDA-Public Use
  Company Number: US-JNJFOC-20150820576

PATIENT
  Age: 57 Year
  Sex: Female
  Weight: 81.19 kg

DRUGS (35)
  1. METHOTREXATE [Suspect]
     Active Substance: METHOTREXATE
     Indication: SYSTEMIC LUPUS ERYTHEMATOSUS
     Route: 048
  2. METFORMIN [Concomitant]
     Active Substance: METFORMIN HYDROCHLORIDE
     Indication: DIABETES MELLITUS
     Route: 048
  3. NYSTATIN. [Concomitant]
     Active Substance: NYSTATIN
     Dosage: 100000 UNIT/ML
     Route: 065
  4. FLEXERIL [Concomitant]
     Active Substance: CYCLOBENZAPRINE HYDROCHLORIDE
     Route: 065
  5. ISOSORBIDE MONONITRATE. [Concomitant]
     Active Substance: ISOSORBIDE MONONITRATE
     Route: 048
  6. REMICADE [Suspect]
     Active Substance: INFLIXIMAB
     Indication: RHEUMATOID ARTHRITIS
     Dosage: TOTAL DOSE: 900 MG. APPROXIMATELY 10 INFUSIONS RECEIVED
     Route: 042
     Dates: start: 20121001, end: 20130528
  7. SIMPONI ARIA [Suspect]
     Active Substance: GOLIMUMAB
     Indication: RHEUMATOID ARTHRITIS
     Dosage: 164 MG (APPROXIMATELY TOTAL NUMBER OF INJECTION RECEIVED BY THE PATIENT WAS 2).
     Route: 042
     Dates: start: 20150512, end: 20150606
  8. METHOTREXATE [Suspect]
     Active Substance: METHOTREXATE
     Indication: RHEUMATOID ARTHRITIS
     Route: 048
  9. OXYCODONE [Concomitant]
     Active Substance: OXYCODONE
     Dosage: AS NEEDED
     Route: 048
  10. EVISTA [Concomitant]
     Active Substance: RALOXIFENE HYDROCHLORIDE
     Indication: OSTEOPOROSIS
     Route: 065
  11. CYANOCOBALAMIN. [Concomitant]
     Active Substance: CYANOCOBALAMIN
     Route: 065
  12. DICLOFENAC SODIUM. [Concomitant]
     Active Substance: DICLOFENAC SODIUM
     Dosage: AS NEEDED
     Route: 048
  13. PLAQUENIL [Concomitant]
     Active Substance: HYDROXYCHLOROQUINE SULFATE
     Indication: RHEUMATOID ARTHRITIS
     Route: 048
  14. CYMBALTA [Concomitant]
     Active Substance: DULOXETINE HYDROCHLORIDE
     Indication: SYSTEMIC LUPUS ERYTHEMATOSUS
     Route: 048
  15. DIFLUCAN [Concomitant]
     Active Substance: FLUCONAZOLE
     Route: 065
  16. METHOTREXATE SODIUM. [Concomitant]
     Active Substance: METHOTREXATE SODIUM
     Route: 065
  17. ACTEMRA [Suspect]
     Active Substance: TOCILIZUMAB
     Indication: RHEUMATOID ARTHRITIS
     Dosage: 800 MG, 10 DOSES
     Route: 042
     Dates: start: 201110, end: 20120731
  18. CYMBALTA [Concomitant]
     Active Substance: DULOXETINE HYDROCHLORIDE
     Indication: RHEUMATOID ARTHRITIS
     Route: 048
  19. NEXIUM [Concomitant]
     Active Substance: ESOMEPRAZOLE MAGNESIUM
     Route: 048
  20. METHYLPREDNISOLONE. [Concomitant]
     Active Substance: METHYLPREDNISOLONE
     Route: 048
  21. FOLIC ACID. [Concomitant]
     Active Substance: FOLIC ACID
     Route: 065
  22. DILTIAZEM [Concomitant]
     Active Substance: DILTIAZEM
     Route: 048
  23. IPRATROPIUM [Concomitant]
     Active Substance: IPRATROPIUM
     Dosage: 2 PUFFS INHALED EVERY 6 HOURS
     Route: 065
  24. RECLAST [Concomitant]
     Active Substance: ZOLEDRONIC ACID
     Indication: OSTEOPOROSIS
     Dosage: GIVEN AS 5 MG/100ML
     Route: 042
     Dates: start: 20131105
  25. PLAQUENIL [Concomitant]
     Active Substance: HYDROXYCHLOROQUINE SULFATE
     Route: 065
  26. CARISOPRODOL. [Concomitant]
     Active Substance: CARISOPRODOL
     Dosage: AS NEEDED
     Route: 048
  27. SENNA [Concomitant]
     Active Substance: SENNA LEAF\SENNOSIDES\SENNOSIDES A AND B
     Dosage: AT BEDTIME
     Route: 048
  28. LEVEMIR [Concomitant]
     Active Substance: INSULIN DETEMIR
     Dosage: AT BEDTIME
     Route: 058
  29. LIDOCAINE. [Concomitant]
     Active Substance: LIDOCAINE
     Dosage: APPLY TOPICALLY TO AFFECTED AREA ONCE A DAY
     Route: 061
  30. LOSARTAN POTASSIUM/HYDROCHLORTHIAZIDE [Concomitant]
     Route: 065
  31. ALBUTEROL. [Concomitant]
     Active Substance: ALBUTEROL
     Dosage: 2 PUFFS INHALED EVERY 6 HOURS
     Route: 065
  32. DOCUSATE SODIUM. [Concomitant]
     Active Substance: DOCUSATE SODIUM
     Route: 048
  33. PLAQUENIL [Concomitant]
     Active Substance: HYDROXYCHLOROQUINE SULFATE
     Indication: SYSTEMIC LUPUS ERYTHEMATOSUS
     Route: 048
  34. OXYCONTIN [Concomitant]
     Active Substance: OXYCODONE HYDROCHLORIDE
     Route: 048
  35. NOVOLOG [Concomitant]
     Active Substance: INSULIN ASPART
     Route: 058

REACTIONS (2)
  - Contusion [Unknown]
  - Extranodal marginal zone B-cell lymphoma (MALT type) [Recovering/Resolving]

NARRATIVE: CASE EVENT DATE: 20150912
